APPROVED DRUG PRODUCT: PIROXICAM
Active Ingredient: PIROXICAM
Strength: 20MG
Dosage Form/Route: CAPSULE;ORAL
Application: A073651 | Product #002
Applicant: CYCLE PHARMACEUTICALS LTD
Approved: Feb 26, 1993 | RLD: No | RS: No | Type: DISCN